FAERS Safety Report 24820224 (Version 1)
Quarter: 2025Q1

REPORT INFORMATION
  Report Type: Spontaneous
  Country: IT (occurrence: IT)
  Receive Date: 20250108
  Receipt Date: 20250108
  Transmission Date: 20250409
  Serious: Yes (Other)
  Sender: IPSEN BIOPHARMACEUTICALS, INC.
  Company Number: IT-SERVIER-S24015689

PATIENT
  Age: 40 Year
  Sex: Male
  Weight: 83 kg

DRUGS (4)
  1. ONIVYDE [Suspect]
     Active Substance: IRINOTECAN HYDROCHLORIDE
     Indication: Pancreatic carcinoma metastatic
     Dosage: 70 MG/MQ: 137,20 MG IN 500 ML NACL 0.9% IN 90 MINUTES
     Route: 042
     Dates: start: 20241120, end: 20241120
  2. ATROPINE [Concomitant]
     Active Substance: ATROPINE
     Indication: Premedication
     Route: 030
     Dates: start: 20241120, end: 20241120
  3. DEXAMETHASONE [Concomitant]
     Active Substance: DEXAMETHASONE
     Indication: Premedication
     Route: 042
     Dates: start: 20241120, end: 20241120
  4. ONDANSETRON [Concomitant]
     Active Substance: ONDANSETRON
     Indication: Premedication
     Route: 042
     Dates: start: 20241120, end: 20241120

REACTIONS (4)
  - Rash [Recovered/Resolved]
  - Feeling hot [Recovered/Resolved]
  - Back pain [Recovered/Resolved]
  - Oxygen saturation decreased [Recovered/Resolved]

NARRATIVE: CASE EVENT DATE: 20241120
